FAERS Safety Report 6999668-5 (Version None)
Quarter: 2010Q3

REPORT INFORMATION
  Report Type: 
  Country: None (occurrence: None)
  Receive Date: 20100920
  Receipt Date: 20100719
  Transmission Date: 20110219
  Serious: No
  Sender: FDA-Public Use
  Company Number: US-ASTRAZENECA-2010SE33590

PATIENT
  Sex: Female
  Weight: 54.4 kg

DRUGS (3)
  1. SEROQUEL [Suspect]
     Indication: INSOMNIA
     Route: 048
     Dates: start: 20100101
  2. SEROQUEL [Suspect]
     Indication: PANIC ATTACK
     Route: 048
     Dates: start: 20100101
  3. SEROQUEL [Suspect]
     Indication: ANXIETY
     Route: 048
     Dates: start: 20100101

REACTIONS (3)
  - CRYING [None]
  - DRUG DOSE OMISSION [None]
  - MENTAL DISORDER [None]
